FAERS Safety Report 6112330-6 (Version None)
Quarter: 2009Q1

REPORT INFORMATION
  Report Type: 
  Country: None (occurrence: None)
  Receive Date: 20090311
  Receipt Date: 20090311
  Transmission Date: 20090719
  Serious: Yes (Life-Threatening, Other)
  Sender: FDA-Public Use
  Company Number: None

PATIENT
  Sex: Male
  Weight: 86.1834 kg

DRUGS (4)
  1. ADVAIR DISKUS 250/50 [Suspect]
     Indication: CHRONIC OBSTRUCTIVE PULMONARY DISEASE
     Dosage: ONCE DAILY INHALE
     Route: 055
     Dates: start: 20081201
  2. ADVAIR DISKUS 250/50 [Suspect]
     Indication: CHRONIC OBSTRUCTIVE PULMONARY DISEASE
     Dosage: ONCE DAILY INHALE
     Route: 055
     Dates: start: 20090101
  3. ADVAIR DISKUS 250/50 [Suspect]
     Indication: CHRONIC OBSTRUCTIVE PULMONARY DISEASE
     Dosage: ONCE DAILY INHALE
     Route: 055
     Dates: start: 20090201
  4. SYMBICORT [Suspect]
     Indication: CHRONIC OBSTRUCTIVE PULMONARY DISEASE
     Dosage: ONCE DAILY INHALE
     Route: 055
     Dates: start: 20090201

REACTIONS (5)
  - COUGH [None]
  - EAR DISCOMFORT [None]
  - HEARING IMPAIRED [None]
  - INCREASED BRONCHIAL SECRETION [None]
  - PARANASAL SINUS HYPERSECRETION [None]
